FAERS Safety Report 8132550-9 (Version None)
Quarter: 2012Q1

REPORT INFORMATION
  Report Type: 
  Country: None (occurrence: None)
  Receive Date: 20120213
  Receipt Date: 20120207
  Transmission Date: 20120608
  Serious: Yes (Other)
  Sender: FDA-Public Use
  Company Number: US-PFIZER INC-2012035577

PATIENT
  Sex: Male

DRUGS (3)
  1. BEXTRA [Suspect]
     Indication: ARTHRITIS
     Dosage: UNK
     Dates: start: 20031105, end: 20041022
  2. BEXTRA [Suspect]
     Dosage: 10 MG, 1X/DAY
  3. BEXTRA [Suspect]
     Dosage: 20 MG, 1X/DAY

REACTIONS (9)
  - NAUSEA [None]
  - MYOCARDIAL INFARCTION [None]
  - MOOD ALTERED [None]
  - WEIGHT INCREASED [None]
  - HEART RATE IRREGULAR [None]
  - DEPRESSION [None]
  - CHEST PAIN [None]
  - HEART RATE INCREASED [None]
  - DIZZINESS [None]
